FAERS Safety Report 7757858-8 (Version None)
Quarter: 2011Q3

REPORT INFORMATION
  Report Type: 
  Country: None (occurrence: None)
  Receive Date: 20110918
  Receipt Date: 20110906
  Transmission Date: 20111222
  Serious: Yes (Other)
  Sender: FDA-Public Use
  Company Number: IT-BRISTOL-MYERS SQUIBB COMPANY-16058687

PATIENT
  Age: 15 Year
  Sex: Female

DRUGS (5)
  1. ETOPOSIDE [Suspect]
     Indication: EPENDYMOMA
  2. TEMOZOLOMIDE [Suspect]
     Indication: EPENDYMOMA
  3. VINCRISTINE [Suspect]
     Indication: EPENDYMOMA
  4. GLIADEL [Suspect]
     Indication: EPENDYMOMA
  5. CYCLOPHOSPHAMIDE [Suspect]
     Indication: EPENDYMOMA

REACTIONS (2)
  - NEOPLASM MALIGNANT [None]
  - NERVOUS SYSTEM DISORDER [None]
